FAERS Safety Report 15540515 (Version 3)
Quarter: 2018Q4

REPORT INFORMATION
  Report Type: Report from Study
  Country: AU (occurrence: AU)
  Receive Date: 20181023
  Receipt Date: 20181206
  Transmission Date: 20190205
  Serious: No
  Sender: FDA-Public Use
  Company Number: AU-ROCHE-2204082

PATIENT
  Sex: Female

DRUGS (5)
  1. FEXOFENADINE [Concomitant]
     Active Substance: FEXOFENADINE\FEXOFENADINE HYDROCHLORIDE
     Indication: PRODUCT USED FOR UNKNOWN INDICATION
     Dosage: 360 MG, BID
     Route: 048
  2. OMALIZUMAB. [Suspect]
     Active Substance: OMALIZUMAB
     Indication: CHRONIC SPONTANEOUS URTICARIA
     Route: 030
     Dates: start: 201805
  3. PREDNISOLONE. [Concomitant]
     Active Substance: PREDNISOLONE
     Indication: PRODUCT USED FOR UNKNOWN INDICATION
     Dosage: UP TO 50 MG
     Route: 048
  4. OMALIZUMAB. [Suspect]
     Active Substance: OMALIZUMAB
     Route: 030
     Dates: start: 20181017
  5. OMALIZUMAB. [Suspect]
     Active Substance: OMALIZUMAB
     Dosage: COMPASSIONATE EXTRA DOSE, NOT SPECIFIED
     Route: 030
     Dates: start: 20181123

REACTIONS (3)
  - Pruritus [Recovering/Resolving]
  - Incorrect route of product administration [Unknown]
  - Drug ineffective [Unknown]
